FAERS Safety Report 13743613 (Version 2)
Quarter: 2017Q3

REPORT INFORMATION
  Report Type: Spontaneous
  Country: US (occurrence: US)
  Receive Date: 20170711
  Receipt Date: 20170721
  Transmission Date: 20171127
  Serious: Yes (Other)
  Sender: FDA-Public Use
  Company Number: US-BAUSCH-BL-2017-020845

PATIENT
  Sex: Female

DRUGS (2)
  1. ANUSOL HC [Suspect]
     Active Substance: HYDROCORTISONE
     Indication: ANAL HAEMORRHAGE
  2. ANUSOL HC [Suspect]
     Active Substance: HYDROCORTISONE
     Indication: ANORECTAL DISCOMFORT
     Dosage: JUST USED IT ONCE
     Route: 065

REACTIONS (4)
  - Rectal haemorrhage [Recovered/Resolved]
  - Memory impairment [Unknown]
  - Haematuria [Recovered/Resolved]
  - Off label use [Unknown]
